FAERS Safety Report 4761070-4 (Version None)
Quarter: 2005Q3

REPORT INFORMATION
  Report Type: 
  Country: None (occurrence: None)
  Receive Date: 20050901
  Receipt Date: 20050819
  Transmission Date: 20060218
  Serious: No
  Sender: FDA-Public Use
  Company Number: 230012M05DEU

PATIENT
  Sex: Female
  Weight: 54 kg

DRUGS (2)
  1. REBIF [Suspect]
     Indication: MULTIPLE SCLEROSIS
     Dosage: 44, 2 IN 1 WEEKS
  2. COPAXONE [Concomitant]

REACTIONS (8)
  - ASTHENIA [None]
  - BEDRIDDEN [None]
  - FATIGUE [None]
  - HEADACHE [None]
  - INFLUENZA LIKE ILLNESS [None]
  - MALAISE [None]
  - MUSCLE SPASMS [None]
  - PYREXIA [None]
